FAERS Safety Report 20260959 (Version 7)
Quarter: 2022Q2

REPORT INFORMATION
  Report Type: Spontaneous
  Country: CA (occurrence: CA)
  Receive Date: 20211230
  Receipt Date: 20220617
  Transmission Date: 20220721
  Serious: Yes (Hospitalization, Other)
  Sender: FDA-Public Use
  Company Number: CA-VALIDUS PHARMACEUTICALS LLC-CA-VDP-2021-014802

PATIENT

DRUGS (96)
  1. FUROSEMIDE [Suspect]
     Active Substance: FUROSEMIDE
     Indication: Oedema
     Dosage: 40 MG, QD
     Route: 065
  2. FUROSEMIDE [Suspect]
     Active Substance: FUROSEMIDE
     Dosage: UNK
     Route: 065
  3. CARBAMAZEPINE [Suspect]
     Active Substance: CARBAMAZEPINE
     Indication: Seizure
     Dosage: UNK, Q12H
     Route: 065
  4. CARBAMAZEPINE [Suspect]
     Active Substance: CARBAMAZEPINE
     Indication: Seizure prophylaxis
     Dosage: UNK
     Route: 065
  5. CARBAMAZEPINE [Suspect]
     Active Substance: CARBAMAZEPINE
     Dosage: UNK
     Route: 065
  6. CARBAMAZEPINE [Suspect]
     Active Substance: CARBAMAZEPINE
     Dosage: UNK
     Route: 065
  7. DULCOLAX (BISACODYL) [Suspect]
     Active Substance: BISACODYL
     Indication: Constipation
     Dosage: UNK
     Route: 065
  8. DULCOLAX (BISACODYL) [Suspect]
     Active Substance: BISACODYL
     Dosage: UNK
     Route: 065
  9. DULCOLAX (BISACODYL) [Suspect]
     Active Substance: BISACODYL
     Dosage: UNK
     Route: 065
  10. ACEBUTOLOL HYDROCHLORIDE [Suspect]
     Active Substance: ACEBUTOLOL HYDROCHLORIDE
     Indication: Hypertension
     Dosage: 400 MG, QD
     Route: 065
  11. ACEBUTOLOL HYDROCHLORIDE [Suspect]
     Active Substance: ACEBUTOLOL HYDROCHLORIDE
     Indication: Coronary artery disease
     Dosage: 400 MG
     Route: 065
  12. ACEBUTOLOL HYDROCHLORIDE [Suspect]
     Active Substance: ACEBUTOLOL HYDROCHLORIDE
     Indication: Chest pain
  13. AMLODIPINE BESYLATE [Suspect]
     Active Substance: AMLODIPINE BESYLATE
     Indication: Hypertension
     Dosage: UNK
     Route: 065
  14. AMLODIPINE BESYLATE [Suspect]
     Active Substance: AMLODIPINE BESYLATE
     Indication: Coronary artery disease
     Dosage: UNK
     Route: 065
  15. AMLODIPINE BESYLATE [Suspect]
     Active Substance: AMLODIPINE BESYLATE
     Indication: Angina pectoris
  16. GALANTAMINE HYDROBROMIDE [Suspect]
     Active Substance: GALANTAMINE HYDROBROMIDE
     Indication: Dementia
     Dosage: 16 MG, QD
     Route: 065
  17. GALANTAMINE HYDROBROMIDE [Suspect]
     Active Substance: GALANTAMINE HYDROBROMIDE
     Indication: Product used for unknown indication
     Dosage: UNK
     Route: 065
  18. GALANTAMINE HYDROBROMIDE [Suspect]
     Active Substance: GALANTAMINE HYDROBROMIDE
     Dosage: UNK
     Route: 065
  19. ROSUVASTATIN [Suspect]
     Active Substance: ROSUVASTATIN
     Indication: Cerebrovascular accident
     Dosage: UNK
     Route: 065
  20. ROSUVASTATIN [Suspect]
     Active Substance: ROSUVASTATIN
     Dosage: UNK
     Route: 065
  21. ROSUVASTATIN [Suspect]
     Active Substance: ROSUVASTATIN
     Dosage: UNK
     Route: 065
  22. AMITRIPTYLINE HYDROCHLORIDE [Suspect]
     Active Substance: AMITRIPTYLINE HYDROCHLORIDE
     Indication: Insomnia
     Dosage: 75 MILLIGRAM, QD
     Route: 065
  23. AMITRIPTYLINE HYDROCHLORIDE [Suspect]
     Active Substance: AMITRIPTYLINE HYDROCHLORIDE
     Dosage: UNK
     Route: 065
  24. DIAZEPAM [Suspect]
     Active Substance: DIAZEPAM
     Indication: Insomnia
     Dosage: UNK
     Route: 065
  25. DIAZEPAM [Suspect]
     Active Substance: DIAZEPAM
     Indication: Coronary artery disease
     Dosage: UNK
     Route: 065
  26. DIAZEPAM [Suspect]
     Active Substance: DIAZEPAM
     Indication: Angina pectoris
     Dosage: UNK
     Route: 065
  27. PHENYLEPHRINE HYDROCHLORIDE [Suspect]
     Active Substance: PHENYLEPHRINE HYDROCHLORIDE
     Indication: Pain
     Dosage: UNK
     Route: 065
  28. PHENYLEPHRINE HYDROCHLORIDE [Suspect]
     Active Substance: PHENYLEPHRINE HYDROCHLORIDE
     Dosage: UNK
     Route: 065
  29. PHENYLEPHRINE HYDROCHLORIDE [Suspect]
     Active Substance: PHENYLEPHRINE HYDROCHLORIDE
     Dosage: UNK
     Route: 065
  30. DIPYRIDAMOLE [Suspect]
     Active Substance: DIPYRIDAMOLE
     Indication: Cerebrovascular accident
     Dosage: UNK
     Route: 065
  31. DIPYRIDAMOLE [Suspect]
     Active Substance: DIPYRIDAMOLE
     Dosage: 2 DOSAGE FORM, QD
     Route: 065
  32. DIPYRIDAMOLE [Suspect]
     Active Substance: DIPYRIDAMOLE
     Dosage: UNK
     Route: 065
  33. DIPYRIDAMOLE [Suspect]
     Active Substance: DIPYRIDAMOLE
     Dosage: UNK
     Route: 065
  34. GLUCOSAMINE [Suspect]
     Active Substance: GLUCOSAMINE
     Indication: Pain
     Dosage: UNK
     Route: 065
  35. GLUCOSAMINE [Suspect]
     Active Substance: GLUCOSAMINE
     Indication: Arthritis
     Dosage: 1000 MG, QD
     Route: 065
  36. GLUCOSAMINE [Suspect]
     Active Substance: GLUCOSAMINE
     Dosage: UNK
     Route: 065
  37. GLUCOSAMINE [Suspect]
     Active Substance: GLUCOSAMINE
     Dosage: UNK
     Route: 065
  38. GLUCOSAMINE [Suspect]
     Active Substance: GLUCOSAMINE
     Dosage: UNK
     Route: 065
  39. NITROGLYCERIN [Suspect]
     Active Substance: NITROGLYCERIN
     Indication: Coronary artery disease
     Dosage: 6 MG, QD
     Route: 061
  40. NITROGLYCERIN [Suspect]
     Active Substance: NITROGLYCERIN
     Indication: Angina pectoris
     Dosage: UNK
     Route: 065
  41. NITROGLYCERIN [Suspect]
     Active Substance: NITROGLYCERIN
     Dosage: UNK
     Route: 065
  42. NITROGLYCERIN [Suspect]
     Active Substance: NITROGLYCERIN
     Dosage: UNK
     Route: 061
  43. OMEPRAZOLE [Suspect]
     Active Substance: OMEPRAZOLE
     Indication: Duodenal ulcer
     Dosage: 20 MG
     Route: 065
  44. OMEPRAZOLE [Suspect]
     Active Substance: OMEPRAZOLE
     Indication: Small intestine carcinoma
     Dosage: UNK
     Route: 065
  45. OMEPRAZOLE [Suspect]
     Active Substance: OMEPRAZOLE
     Indication: Small intestine carcinoma
     Dosage: UNK
     Route: 065
  46. OMEPRAZOLE [Suspect]
     Active Substance: OMEPRAZOLE
     Dosage: UNK
     Route: 065
  47. QUININE [Suspect]
     Active Substance: QUININE
     Indication: Pain
     Dosage: UNK
     Route: 065
  48. QUININE [Suspect]
     Active Substance: QUININE
     Dosage: UNK
     Route: 065
  49. ACETAMINOPHEN AND CAFFEINE [Suspect]
     Active Substance: ACETAMINOPHEN\CAFFEINE
     Indication: Product used for unknown indication
     Dosage: 650 MG, QD
     Route: 065
  50. ACETAMINOPHEN AND CAFFEINE [Suspect]
     Active Substance: ACETAMINOPHEN\CAFFEINE
     Dosage: UNK
     Route: 065
  51. ACETAMINOPHEN AND CAFFEINE [Suspect]
     Active Substance: ACETAMINOPHEN\CAFFEINE
     Dosage: UNK
     Route: 065
  52. ACETAMINOPHEN AND CAFFEINE [Suspect]
     Active Substance: ACETAMINOPHEN\CAFFEINE
     Dosage: UNK
     Route: 065
  53. ACETAMINOPHEN [Suspect]
     Active Substance: ACETAMINOPHEN
     Indication: Product used for unknown indication
     Dosage: UNK
     Route: 065
  54. ACETAMINOPHEN [Suspect]
     Active Substance: ACETAMINOPHEN
     Dosage: UNK
     Route: 065
  55. ACETAMINOPHEN [Suspect]
     Active Substance: ACETAMINOPHEN
     Dosage: UNK
     Route: 065
  56. SALICYLAMIDE [Suspect]
     Active Substance: SALICYLAMIDE
     Indication: Pain
     Dosage: UNK
     Route: 065
  57. SALICYLAMIDE [Suspect]
     Active Substance: SALICYLAMIDE
     Dosage: UNK
     Route: 065
  58. SALICYLAMIDE [Suspect]
     Active Substance: SALICYLAMIDE
     Dosage: UNK
     Route: 065
  59. AMITRIPTYLINE HYDROCHLORIDE\PERPHENAZINE [Suspect]
     Active Substance: AMITRIPTYLINE HYDROCHLORIDE\PERPHENAZINE
     Indication: Insomnia
     Dosage: 75 MG, QD
     Route: 065
  60. AMITRIPTYLINE HYDROCHLORIDE\PERPHENAZINE [Suspect]
     Active Substance: AMITRIPTYLINE HYDROCHLORIDE\PERPHENAZINE
     Dosage: UNK
     Route: 065
  61. CYCLOBENZAPRINE [Suspect]
     Active Substance: CYCLOBENZAPRINE
     Indication: Pain
     Dosage: 1.87 MG, QD
     Route: 065
  62. CYCLOBENZAPRINE [Suspect]
     Active Substance: CYCLOBENZAPRINE
     Indication: Fibromyalgia
     Dosage: 10 MG, QD
     Route: 065
  63. CYCLOBENZAPRINE [Suspect]
     Active Substance: CYCLOBENZAPRINE
     Dosage: 15 MG, Q8H
     Route: 065
  64. CYCLOBENZAPRINE [Suspect]
     Active Substance: CYCLOBENZAPRINE
     Dosage: UNK
     Route: 065
  65. CYCLOBENZAPRINE [Suspect]
     Active Substance: CYCLOBENZAPRINE
     Dosage: UNK
     Route: 065
  66. CYCLOBENZAPRINE [Suspect]
     Active Substance: CYCLOBENZAPRINE
     Dosage: UNK
     Route: 065
  67. CYCLOBENZAPRINE [Suspect]
     Active Substance: CYCLOBENZAPRINE
     Dosage: UNK
     Route: 065
  68. CYCLOBENZAPRINE [Suspect]
     Active Substance: CYCLOBENZAPRINE
     Dosage: UNK
     Route: 065
  69. PHENOLPHTHALEIN [Suspect]
     Active Substance: PHENOLPHTHALEIN
     Indication: Pain
     Dosage: UNK
     Route: 065
  70. SENNOSIDES [Suspect]
     Active Substance: SENNOSIDES
     Indication: Pain
     Dosage: UNK
     Route: 065
  71. SENNOSIDES [Suspect]
     Active Substance: SENNOSIDES
     Dosage: UNK
     Route: 065
  72. DILTIAZEM [Suspect]
     Active Substance: DILTIAZEM
     Indication: Coronary artery disease
     Dosage: 360 MG, QD
     Route: 065
  73. DILTIAZEM [Suspect]
     Active Substance: DILTIAZEM
     Indication: Angina pectoris
     Dosage: UNK
     Route: 065
  74. PERPHENAZINE [Suspect]
     Active Substance: PERPHENAZINE
     Indication: Insomnia
     Dosage: 75 MILLIGRAM, QD
     Route: 065
  75. GALANTAMINE [Suspect]
     Active Substance: GALANTAMINE
     Indication: Product used for unknown indication
     Dosage: UNK
     Route: 065
  76. QUININE [Suspect]
     Active Substance: QUININE
     Indication: Pain
     Dosage: UNK
     Route: 065
  77. DOCUSATE SODIUM\PHENOLPHTHALEIN [Suspect]
     Active Substance: DOCUSATE SODIUM\PHENOLPHTHALEIN
     Indication: Pain
     Dosage: UNK
     Route: 065
  78. LACTULOSE [Suspect]
     Active Substance: LACTULOSE
     Indication: Constipation
     Dosage: 15 ML, QD
     Route: 065
  79. LEVOFLOXACIN [Suspect]
     Active Substance: LEVOFLOXACIN
     Indication: Urinary tract infection
     Dosage: 200 MG, QD
     Route: 065
  80. LEVOTHYROXINE SODIUM [Suspect]
     Active Substance: LEVOTHYROXINE SODIUM
     Indication: Thyroid disorder
     Dosage: UNK
     Route: 065
  81. MAGNESIUM HYDROXIDE [Suspect]
     Active Substance: MAGNESIUM HYDROXIDE
     Indication: Constipation
     Dosage: 1240 MG, QD
     Route: 065
  82. MORPHINE SULFATE [Suspect]
     Active Substance: MORPHINE SULFATE
     Indication: Pain
     Dosage: 10 MG, QD
     Route: 030
  83. OXAZEPAM [Suspect]
     Active Substance: OXAZEPAM
     Indication: Coronary artery disease
     Dosage: 15 MG, QD
     Route: 065
  84. OXAZEPAM [Suspect]
     Active Substance: OXAZEPAM
     Indication: Insomnia
  85. QUINAPRIL HYDROCHLORIDE [Suspect]
     Active Substance: QUINAPRIL HYDROCHLORIDE
     Indication: Coronary artery disease
     Dosage: 40 MG, QD
     Route: 065
  86. QUINAPRIL HYDROCHLORIDE [Suspect]
     Active Substance: QUINAPRIL HYDROCHLORIDE
     Indication: Hypertension
  87. ALBUTEROL SULFATE [Suspect]
     Active Substance: ALBUTEROL SULFATE
     Indication: Product used for unknown indication
     Dosage: UNK
     Route: 065
  88. SPIRIVA [Suspect]
     Active Substance: TIOTROPIUM BROMIDE MONOHYDRATE
     Indication: Chronic obstructive pulmonary disease
     Dosage: 18 MICROGRAM, QD
     Route: 065
  89. CRANBERRY [Suspect]
     Active Substance: CRANBERRY
     Indication: Product used for unknown indication
     Dosage: UNK
     Route: 065
  90. AMLODIPINE BESYLATE [Suspect]
     Active Substance: AMLODIPINE BESYLATE
     Indication: Product used for unknown indication
     Dosage: UNK
     Route: 065
  91. DOCUSATE SODIUM\PHENOLPHTHALEIN [Suspect]
     Active Substance: DOCUSATE SODIUM\PHENOLPHTHALEIN
     Indication: Product used for unknown indication
     Dosage: UNK
     Route: 065
  92. PHENOLPHTHALEIN [Suspect]
     Active Substance: PHENOLPHTHALEIN
     Indication: Product used for unknown indication
     Dosage: UNK
     Route: 065
  93. ASPIRIN [Concomitant]
     Active Substance: ASPIRIN
     Indication: Product used for unknown indication
     Dosage: UNK
     Route: 065
  94. ACETAMINOPHEN [Concomitant]
     Active Substance: ACETAMINOPHEN
     Indication: Product used for unknown indication
     Dosage: UNK
     Route: 065
  95. AVENA SATIVA POLLEN [Concomitant]
     Active Substance: AVENA SATIVA POLLEN
     Indication: Product used for unknown indication
     Dosage: UNK
     Route: 065
  96. GLYCERIN\POTASSIUM [Concomitant]
     Active Substance: GLYCERIN\POTASSIUM
     Indication: Product used for unknown indication
     Dosage: UNK
     Route: 065

REACTIONS (14)
  - Depressed level of consciousness [Recovered/Resolved]
  - Balance disorder [Recovered/Resolved]
  - Cognitive disorder [Recovered/Resolved]
  - Creatinine renal clearance decreased [Recovered/Resolved]
  - Fall [Recovered/Resolved]
  - Hypotension [Recovered/Resolved]
  - Mobility decreased [Recovered/Resolved]
  - Pain [Recovered/Resolved]
  - Sedation [Recovered/Resolved]
  - Sedation complication [Recovered/Resolved]
  - Toxicity to various agents [Recovered/Resolved]
  - Blood calcium decreased [Recovered/Resolved]
  - Orthostatic hypotension [Recovered/Resolved]
  - Constipation [Recovered/Resolved]
